FAERS Safety Report 5333131-2 (Version None)
Quarter: 2007Q2

REPORT INFORMATION
  Report Type: 
  Country: None (occurrence: None)
  Receive Date: 20070521
  Receipt Date: 20070521
  Transmission Date: 20071010
  Serious: Yes (Other)
  Sender: FDA-Public Use
  Company Number: None

PATIENT
  Age: 54 Year
  Sex: Female
  Weight: 85.7298 kg

DRUGS (1)
  1. ZOMETA [Suspect]
     Indication: BREAST CANCER
     Dosage: 4.3 MG MONTHLY IV
     Route: 042
     Dates: start: 20060615, end: 20070518

REACTIONS (2)
  - GINGIVAL DISORDER [None]
  - OSTEONECROSIS [None]
